FAERS Safety Report 5340640-9 (Version None)
Quarter: 2007Q2

REPORT INFORMATION
  Report Type: 
  Country: None (occurrence: None)
  Receive Date: 20070531
  Receipt Date: 20070521
  Transmission Date: 20071010
  Serious: Yes (Disabling, Other)
  Sender: FDA-Public Use
  Company Number: FR-PFIZER INC-2005130558

PATIENT
  Sex: Male
  Weight: 82 kg

DRUGS (3)
  1. FELDENE [Suspect]
     Indication: BACK PAIN
     Route: 030
     Dates: start: 20041125, end: 20041130
  2. THIOCOLCHICOSIDE [Concomitant]
     Route: 048
  3. PARACETAMOL [Concomitant]
     Route: 048

REACTIONS (7)
  - BURNING SENSATION [None]
  - DRUG ADMINISTRATION ERROR [None]
  - INJECTION SITE PAIN [None]
  - MUSCLE SPASMS [None]
  - PAIN IN EXTREMITY [None]
  - SCIATICA [None]
  - SENSATION OF HEAVINESS [None]
